FAERS Safety Report 14789386 (Version 2)
Quarter: 2018Q3

REPORT INFORMATION
  Report Type: Spontaneous
  Country: US (occurrence: US)
  Receive Date: 20180423
  Receipt Date: 20180813
  Transmission Date: 20181010
  Serious: Yes (Life-Threatening, Hospitalization)
  Sender: FDA-Public Use
  Company Number: US-SUN PHARMACEUTICAL INDUSTRIES LTD-2018US-170166

PATIENT
  Age: 13 Year
  Sex: Female

DRUGS (1)
  1. MORPHINE [Suspect]
     Active Substance: MORPHINE
     Indication: PRODUCT USED FOR UNKNOWN INDICATION
     Route: 065

REACTIONS (8)
  - Overdose [Unknown]
  - Acute kidney injury [Recovered/Resolved]
  - Posterior reversible encephalopathy syndrome [Unknown]
  - Hypoxia [Recovering/Resolving]
  - Respiratory failure [Unknown]
  - Sickle cell anaemia with crisis [Unknown]
  - Acute chest syndrome [Unknown]
  - Acute respiratory distress syndrome [Unknown]
